FAERS Safety Report 16139691 (Version 1)
Quarter: 2019Q1

REPORT INFORMATION
  Report Type: Spontaneous
  Country: US (occurrence: US)
  Receive Date: 20190330
  Receipt Date: 20190330
  Transmission Date: 20190418
  Serious: No
  Sender: FDA-Public Use
  Company Number: US-JNJFOC-20190314352

PATIENT
  Sex: Female

DRUGS (2)
  1. TYLENOL 8HR [Concomitant]
     Active Substance: ACETAMINOPHEN
     Indication: BACK PAIN
     Route: 048
  2. TYLENOL EXTRA STRENGTH [Suspect]
     Active Substance: ACETAMINOPHEN
     Indication: BACK PAIN
     Dosage: 2 PILLS ONCE AT NIGHT
     Route: 048

REACTIONS (3)
  - Drug effect incomplete [Unknown]
  - Product administration error [Unknown]
  - Drug effect delayed [Unknown]
